FAERS Safety Report 20345944 (Version 8)
Quarter: 2023Q4

REPORT INFORMATION
  Report Type: Spontaneous
  Country: US (occurrence: US)
  Receive Date: 20220118
  Receipt Date: 20231219
  Transmission Date: 20240109
  Serious: Yes (Other)
  Sender: FDA-Public Use
  Company Number: US-PFIZER INC-2021008127

PATIENT
  Age: 79 Year
  Sex: Female

DRUGS (2)
  1. EUCRISA [Suspect]
     Active Substance: CRISABOROLE
     Indication: Lichen sclerosus
     Dosage: APPLY TWICE DAILY TO GENITALIA AREA/HAD THE DRUG UNDER HER ARM AND ON HER VAGINA
     Route: 061
  2. EUCRISA [Suspect]
     Active Substance: CRISABOROLE
     Dosage: APPLY TO GROIN BID X 1 WEEK ON, 1 WEEK OFF
     Route: 061

REACTIONS (8)
  - Neovascular age-related macular degeneration [Unknown]
  - Knee operation [Unknown]
  - Breast cancer [Not Recovered/Not Resolved]
  - Blindness unilateral [Unknown]
  - Off label use [Unknown]
  - Skin lesion [Unknown]
  - Immune system disorder [Unknown]
  - Limb discomfort [Unknown]
